FAERS Safety Report 11739940 (Version 2)
Quarter: 2015Q4

REPORT INFORMATION
  Report Type: Spontaneous
  Country: US (occurrence: US)
  Receive Date: 20151110
  Receipt Date: 20151120
  Transmission Date: 20160304
  Serious: No
  Sender: FDA-Public Use
  Company Number: US-ELI_LILLY_AND_COMPANY-US201207001488

PATIENT
  Sex: Female

DRUGS (2)
  1. FORTEO [Suspect]
     Active Substance: TERIPARATIDE
     Dosage: 20 UG, QD
     Dates: end: 201210
  2. FORTEO [Suspect]
     Active Substance: TERIPARATIDE
     Indication: OSTEOPOROSIS
     Dosage: 20 UG, QD

REACTIONS (7)
  - Influenza like illness [Recovered/Resolved]
  - Skin ulcer [Unknown]
  - Arthralgia [Unknown]
  - Pain [Unknown]
  - Joint swelling [Recovered/Resolved]
  - Asthenia [Unknown]
  - Pain [Recovered/Resolved]
